FAERS Safety Report 6695850-5 (Version None)
Quarter: 2010Q2

REPORT INFORMATION
  Report Type: 
  Country: None (occurrence: None)
  Receive Date: 20100407
  Receipt Date: 20090508
  Transmission Date: 20101027
  Serious: Yes (Hospitalization)
  Sender: FDA-Public Use
  Company Number: KV200800298

PATIENT
  Age: 84 Year
  Sex: Female
  Weight: 67.1 kg

DRUGS (9)
  1. PROPAFENONE HYDROCHLORIDE [Suspect]
     Indication: ATRIAL FIBRILLATION
     Dosage: 150 MG, ONE TAB, TID, ORAL
     Route: 048
     Dates: start: 20080701, end: 20080801
  2. LOVASTATIN [Concomitant]
  3. LOPRESSOR [Concomitant]
  4. PRILOSEC (OMEPRAZOLE) [Concomitant]
  5. ASPIRIN [Concomitant]
  6. ATIVAN [Concomitant]
  7. COUMADIN [Concomitant]
  8. BENICAR HCT [Concomitant]
  9. MAGNESIUM OXIDE (MAGNESIUM OXIDE) [Concomitant]

REACTIONS (7)
  - ABDOMINAL DISCOMFORT [None]
  - ASTHENIA [None]
  - ATRIAL FIBRILLATION [None]
  - BLOOD SODIUM DECREASED [None]
  - DEHYDRATION [None]
  - FATIGUE [None]
  - HYPOTENSION [None]
